FAERS Safety Report 17883199 (Version 1)
Quarter: 2020Q2

REPORT INFORMATION
  Report Type: Spontaneous
  Country: GB (occurrence: GB)
  Receive Date: 20200611
  Receipt Date: 20200611
  Transmission Date: 20200714
  Serious: Yes (Other)
  Sender: FDA-Public Use
  Company Number: GB-ROCHE-2615404

PATIENT
  Age: 43 Year
  Sex: Female

DRUGS (1)
  1. HERCEPTIN [Suspect]
     Active Substance: TRASTUZUMAB
     Indication: HER2 POSITIVE BREAST CANCER
     Dosage: UNKNOWN - BUT STANDARD REGIME POST MASTECTOMY FOR HER2 POSITIVE ER NEGATIVE TUMOUR.
     Route: 041
     Dates: end: 20160428

REACTIONS (3)
  - Palpitations [Recovered/Resolved]
  - Temperature intolerance [Recovered/Resolved]
  - Thyroiditis acute [Recovered/Resolved]

NARRATIVE: CASE EVENT DATE: 20160914
